FAERS Safety Report 6451191-2 (Version None)
Quarter: 2009Q4

REPORT INFORMATION
  Report Type: 
  Country: None (occurrence: None)
  Receive Date: 20091123
  Receipt Date: 20091117
  Transmission Date: 20100525
  Serious: Yes (Other)
  Sender: FDA-Public Use
  Company Number: CA-PFIZER INC-2009251413

PATIENT
  Age: 28 Year
  Sex: Male

DRUGS (6)
  1. ZELDOX [Suspect]
     Indication: PSYCHOTIC DISORDER
     Dosage: 40 MG, 2X/DAY
     Dates: start: 20090101
  2. RISPERDAL [Concomitant]
     Dosage: 2MG/DAY
  3. RISPERIDONE [Concomitant]
     Dosage: 50 MG, UNK
  4. CELEXA [Concomitant]
     Dosage: 60 MG, UNK
  5. ATIVAN [Concomitant]
     Dosage: 1 MG, 2X/DAY
  6. NEURONTIN [Concomitant]
     Dosage: 200MG AM / 300MG HS

REACTIONS (4)
  - HALLUCINATION [None]
  - PARANOIA [None]
  - REPETITIVE SPEECH [None]
  - WRONG TECHNIQUE IN DRUG USAGE PROCESS [None]
